FAERS Safety Report 5830512-5 (Version None)
Quarter: 2008Q3

REPORT INFORMATION
  Report Type: 
  Country: None (occurrence: None)
  Receive Date: 20080801
  Receipt Date: 20070712
  Transmission Date: 20090109
  Serious: Yes (Life-Threatening)
  Sender: FDA-Public Use
  Company Number: US-BRISTOL-MYERS SQUIBB COMPANY-13818869

PATIENT
  Age: 62 Year
  Sex: Female

DRUGS (2)
  1. COUMADIN [Suspect]
     Indication: THROMBOSIS
     Route: 048
     Dates: start: 20050516
  2. PAMIDRONATE DISODIUM [Concomitant]
     Route: 042

REACTIONS (1)
  - INTERNATIONAL NORMALISED RATIO DECREASED [None]
